FAERS Safety Report 15262579 (Version 2)
Quarter: 2018Q3

REPORT INFORMATION
  Report Type: Report from Study
  Country: TW (occurrence: TW)
  Receive Date: 20180809
  Receipt Date: 20180816
  Transmission Date: 20181010
  Serious: Yes (Hospitalization, Other)
  Sender: FDA-Public Use
  Company Number: TW-ACTELION-A-US2018-177298

PATIENT
  Age: 63 Year
  Sex: Female

DRUGS (14)
  1. FLUITRAN [Concomitant]
     Active Substance: TRICHLORMETHIAZIDE
  2. OPSUMIT [Concomitant]
     Active Substance: MACITENTAN
  3. PIRACETAM [Concomitant]
     Active Substance: PIRACETAM
  4. SOFOSBUVIR [Concomitant]
     Active Substance: SOFOSBUVIR
  5. LACTULOSE. [Concomitant]
     Active Substance: LACTULOSE
  6. VELPATASVIR [Concomitant]
     Active Substance: VELPATASVIR
  7. ADEMPAS [Suspect]
     Active Substance: RIOCIGUAT
     Indication: PULMONARY HYPERTENSION
     Dosage: 2 MG, TID
     Route: 065
     Dates: start: 20170410
  8. FOLIC ACID. [Concomitant]
     Active Substance: FOLIC ACID
  9. VENTAVIS [Suspect]
     Active Substance: ILOPROST
     Indication: PULMONARY HYPERTENSION
     Dosage: UNK
     Route: 055
     Dates: start: 20140714, end: 20180528
  10. TRACLEER [Concomitant]
     Active Substance: BOSENTAN
     Indication: PULMONARY ARTERIAL HYPERTENSION
  11. NEXIUM [Concomitant]
     Active Substance: ESOMEPRAZOLE MAGNESIUM
  12. METHYCOBAL [Concomitant]
     Active Substance: METHYLCOBALAMIN
  13. FUROSEMIDE. [Concomitant]
     Active Substance: FUROSEMIDE
  14. POTASSIUM GLUCONATE [Concomitant]
     Active Substance: POTASSIUM GLUCONATE

REACTIONS (7)
  - Haemoglobin decreased [Unknown]
  - Blood potassium decreased [Unknown]
  - Lip injury [Unknown]
  - Muscular weakness [Unknown]
  - Gastrointestinal ulcer [Unknown]
  - Transfusion [Recovered/Resolved with Sequelae]
  - Oedema peripheral [Unknown]

NARRATIVE: CASE EVENT DATE: 20180730
